FAERS Safety Report 14988924 (Version 14)
Quarter: 2024Q3

REPORT INFORMATION
  Report Type: Report from Study
  Country: CA (occurrence: CA)
  Receive Date: 20180608
  Receipt Date: 20240923
  Transmission Date: 20241017
  Serious: Yes (Other)
  Sender: NOVARTIS
  Company Number: PHHY2018CA042982

PATIENT
  Age: 55 Year
  Sex: Female

DRUGS (11)
  1. SANDOSTATIN [Suspect]
     Active Substance: OCTREOTIDE ACETATE
     Indication: Acromegaly
     Dosage: 100 UG, TID
     Route: 058
     Dates: start: 20180309
  2. SANDOSTATIN [Suspect]
     Active Substance: OCTREOTIDE ACETATE
     Dosage: 20 MG, Q4W
     Route: 030
     Dates: start: 20180430
  3. SANDOSTATIN [Suspect]
     Active Substance: OCTREOTIDE ACETATE
     Dosage: 20 MG, Q4W
     Route: 030
     Dates: start: 20240822
  4. SANDOSTATIN LAR DEPOT [Suspect]
     Active Substance: OCTREOTIDE ACETATE
     Indication: Acromegaly
     Dosage: UNK
     Route: 030
     Dates: start: 201711
  5. SANDOSTATIN LAR DEPOT [Suspect]
     Active Substance: OCTREOTIDE ACETATE
     Dosage: 10 MG, QMO (EVERY 4 WEEKS)
     Route: 030
     Dates: start: 20180430
  6. SANDOSTATIN LAR DEPOT [Suspect]
     Active Substance: OCTREOTIDE ACETATE
     Dosage: 20 MG, QMO (EVERY 4 WEEKS)
     Route: 030
     Dates: start: 20180430
  7. JARDIANCE [Concomitant]
     Active Substance: EMPAGLIFLOZIN
     Indication: Product used for unknown indication
     Dosage: UNK
     Route: 065
  8. CLOPIDOGREL [Concomitant]
     Active Substance: CLOPIDOGREL BISULFATE
     Indication: Product used for unknown indication
     Dosage: UNK
     Route: 065
  9. LEVOTHYROXINE [Concomitant]
     Active Substance: LEVOTHYROXINE\LEVOTHYROXINE SODIUM
     Indication: Product used for unknown indication
     Dosage: UNK
     Route: 048
  10. BISOPROLOL [Concomitant]
     Active Substance: BISOPROLOL\BISOPROLOL FUMARATE
     Indication: Product used for unknown indication
     Dosage: 5 MG
     Route: 048
  11. BISOPROLOL [Concomitant]
     Active Substance: BISOPROLOL\BISOPROLOL FUMARATE
     Dosage: 2.5 MG (STRENGTH : 2.5 MG)
     Route: 048

REACTIONS (22)
  - Haematoma [Recovered/Resolved]
  - Body temperature decreased [Unknown]
  - Nervousness [Unknown]
  - Herpes zoster [Recovering/Resolving]
  - Burning sensation [Recovering/Resolving]
  - Nasopharyngitis [Unknown]
  - Cough [Unknown]
  - Nasal congestion [Unknown]
  - Blood pressure decreased [Unknown]
  - Insulin-like growth factor increased [Unknown]
  - SARS-CoV-2 test positive [Recovered/Resolved]
  - SARS-CoV-2 test positive [Recovered/Resolved]
  - Influenza like illness [Unknown]
  - Rhinorrhoea [Unknown]
  - Chills [Unknown]
  - Headache [Unknown]
  - Oropharyngeal pain [Unknown]
  - Pain [Recovering/Resolving]
  - Injection site haemorrhage [Recovered/Resolved]
  - Rash [Recovering/Resolving]
  - Wrong technique in product usage process [Unknown]
  - Illness [Unknown]

NARRATIVE: CASE EVENT DATE: 20180527
